FAERS Safety Report 8964694 (Version 1)
Quarter: 2012Q4

REPORT INFORMATION
  Report Type: Report from Study
  Country: US (occurrence: US)
  Receive Date: 20121214
  Receipt Date: 20121214
  Transmission Date: 20130627
  Serious: No
  Sender: FDA-Public Use
  Company Number: US-VERTEX PHARMACEUTICALS INC.-2012-026142

PATIENT
  Age: 53 Year
  Sex: Female
  Weight: 68 kg

DRUGS (6)
  1. VX-950 (TELAPREVIR) [Suspect]
     Indication: HEPATITIS C
     Dosage: 750 mg, tid
     Route: 048
  2. RIBAPAK [Suspect]
     Indication: HEPATITIS C
     Dosage: 1000 mg, qd
  3. PEGASYS [Suspect]
     Indication: HEPATITIS C
     Dosage: 180mcg/M
  4. PROCRIT                            /00928302/ [Concomitant]
     Dosage: 40000/ML
  5. PROCHLORPERAZ [Concomitant]
     Dosage: 10 mg, UNK
  6. ONDANSETRON [Concomitant]
     Dosage: 8 mg, UNK

REACTIONS (1)
  - Anaemia [Unknown]
